FAERS Safety Report 4512055-4 (Version None)
Quarter: 2004Q4

REPORT INFORMATION
  Report Type: 
  Country: None (occurrence: None)
  Receive Date: 20041123
  Receipt Date: 20041105
  Transmission Date: 20050328
  Serious: Yes (Hospitalization)
  Sender: FDA-Public Use
  Company Number: F01200403473

PATIENT
  Age: 48 Year
  Sex: Male

DRUGS (7)
  1. OXALIPLATIN [Suspect]
     Indication: COLON CANCER
     Dosage: 240 MG Q3W INTRAVENOUS NOS
     Route: 042
     Dates: start: 20040908, end: 20040908
  2. CAPECITABINE [Suspect]
     Dosage: 1800 MG TWICE A DAY PER ORAL FROM D1 TO D15 ORAL
     Route: 048
     Dates: start: 20040908, end: 20040922
  3. BETANOID             (BETAMETHASONE) [Concomitant]
  4. ZAMANON                  (DOLASETRON MESILATE) [Concomitant]
  5. MYPROLOL             (ACETAMINOPHEN/CODEINE PHOSPHATE/IBUPROFEN) [Concomitant]
  6. ALPRAZOLAM [Concomitant]
  7. DORMONOCT         (LOPRAZOLAM MESILATE) [Concomitant]

REACTIONS (3)
  - POST PROCEDURAL COMPLICATION [None]
  - SURGICAL PROCEDURE REPEATED [None]
  - WOUND DEHISCENCE [None]
